FAERS Safety Report 7941170-8 (Version None)
Quarter: 2011Q4

REPORT INFORMATION
  Report Type: 
  Country: None (occurrence: None)
  Receive Date: 20111116
  Receipt Date: 20110901
  Transmission Date: 20120403
  Serious: No
  Sender: FDA-Public Use
  Company Number: None

PATIENT
  Sex: Female

DRUGS (2)
  1. ASCLERA [Suspect]
  2. ASCLERA [Suspect]
     Indication: VARICOSE VEIN
     Dosage: I.V.
     Route: 042
     Dates: start: 20110831

REACTIONS (2)
  - INJECTION SITE PAIN [None]
  - OFF LABEL USE [None]
